FAERS Safety Report 14826587 (Version 1)
Quarter: 2018Q2

REPORT INFORMATION
  Report Type: Report from Study
  Country: US (occurrence: US)
  Receive Date: 20180430
  Receipt Date: 20180430
  Transmission Date: 20180711
  Serious: Yes (Other)
  Sender: FDA-Public Use
  Company Number: US-GILEAD-2018-0335300

PATIENT
  Age: 49 Year
  Sex: Female

DRUGS (19)
  1. NEXT CHOICE [Concomitant]
     Active Substance: LEVONORGESTREL
  2. FLUCONAZOLE. [Concomitant]
     Active Substance: FLUCONAZOLE
  3. REVATIO [Concomitant]
     Active Substance: SILDENAFIL CITRATE
  4. CLINDAMYCIN. [Concomitant]
     Active Substance: CLINDAMYCIN
  5. CYCLOBENZAPRIN [Concomitant]
     Active Substance: CYCLOBENZAPRINE
  6. FUROSEMIDE. [Concomitant]
     Active Substance: FUROSEMIDE
  7. LEVOTHYROXINE. [Concomitant]
     Active Substance: LEVOTHYROXINE
  8. PLAN B [Concomitant]
     Active Substance: LEVONORGESTREL
  9. IBUPROFEN. [Concomitant]
     Active Substance: IBUPROFEN
  10. AZITHROMYCIN ANHYDROUS. [Concomitant]
     Active Substance: AZITHROMYCIN ANHYDROUS
  11. ALPRAZOLAM. [Concomitant]
     Active Substance: ALPRAZOLAM
  12. AMBRISENTAN [Suspect]
     Active Substance: AMBRISENTAN
     Indication: PULMONARY HYPERTENSION
     Dosage: 10 MG, QD
     Route: 065
     Dates: start: 20090402
  13. LOVENOX [Concomitant]
     Active Substance: ENOXAPARIN SODIUM
  14. METRONIDAZOL                       /00012501/ [Concomitant]
     Active Substance: METRONIDAZOLE
  15. AMLODIPINE [Concomitant]
     Active Substance: AMLODIPINE BESYLATE
  16. VITAMIN D [Concomitant]
     Active Substance: CHOLECALCIFEROL
  17. WARFARIN [Concomitant]
     Active Substance: WARFARIN
  18. POTASSIUM CHLORIDE. [Concomitant]
     Active Substance: POTASSIUM CHLORIDE
  19. FLUTICASONE. [Concomitant]
     Active Substance: FLUTICASONE

REACTIONS (1)
  - Thrombosis [Unknown]
